FAERS Safety Report 14072106 (Version 3)
Quarter: 2018Q2

REPORT INFORMATION
  Report Type: Spontaneous
  Country: US (occurrence: US)
  Receive Date: 20171010
  Receipt Date: 20180611
  Transmission Date: 20180711
  Serious: No
  Sender: FDA-Public Use
  Company Number: US-SA-2017SA160185

PATIENT
  Age: 28 Year
  Sex: Female
  Weight: 53.5 kg

DRUGS (1)
  1. DUPIXENT [Suspect]
     Active Substance: DUPILUMAB
     Indication: DERMATITIS ATOPIC
     Dosage: 300 MG,QOW
     Route: 058
     Dates: start: 20170727

REACTIONS (11)
  - Injection site haemorrhage [Unknown]
  - Injection site bruising [Unknown]
  - Skin exfoliation [Unknown]
  - Stress [Unknown]
  - Injection site mass [Unknown]
  - Pruritus [Unknown]
  - Skin fissures [Unknown]
  - Myalgia [Unknown]
  - Sunburn [Unknown]
  - Dry skin [Unknown]
  - Gait disturbance [Recovered/Resolved]

NARRATIVE: CASE EVENT DATE: 2017
